FAERS Safety Report 18901865 (Version 1)
Quarter: 2021Q1

REPORT INFORMATION
  Report Type: Report from Study
  Country: GB (occurrence: GB)
  Receive Date: 20210216
  Receipt Date: 20210216
  Transmission Date: 20210420
  Serious: Yes (Life-Threatening, Hospitalization, Disabling)
  Sender: FDA-Public Use
  Company Number: GB-MYLANLABS-2021M1009796

PATIENT
  Age: 42 Year
  Sex: Female
  Weight: 98 kg

DRUGS (88)
  1. DOXYCYCLINE. [Suspect]
     Active Substance: DOXYCYCLINE
     Indication: BREAST CANCER METASTATIC
     Dosage: 160 MILLIGRAM, MONTHLY
     Route: 042
     Dates: start: 20160708
  2. DOCETAXEL. [Suspect]
     Active Substance: DOCETAXEL
     Dosage: 160 MILLIGRAM, MONTHLY
     Route: 042
     Dates: start: 20160808
  3. CHLORHEXIDINE [Concomitant]
     Active Substance: CHLORHEXIDINE
     Dosage: UNK
  4. CIPROFLOXACIN. [Concomitant]
     Active Substance: CIPROFLOXACIN
     Dosage: UNK
  5. MAGNASPARTATE [Concomitant]
     Dosage: UNK
  6. OMEPRAZOLE. [Concomitant]
     Active Substance: OMEPRAZOLE
     Dosage: UNK
  7. TINZAPARIN [Concomitant]
     Active Substance: TINZAPARIN
     Dosage: UNK
  8. TRASTUZUMAB. [Suspect]
     Active Substance: TRASTUZUMAB
     Dosage: 609 MILLIGRAM, MONTHLY
     Route: 042
     Dates: start: 20160830, end: 20160830
  9. LETROZOLE. [Suspect]
     Active Substance: LETROZOLE
     Indication: HER2 POSITIVE BREAST CANCER
     Dosage: 2.5 MILLIGRAM, QD
     Route: 048
     Dates: start: 20170124
  10. PARACETAMOL [Concomitant]
     Active Substance: ACETAMINOPHEN
     Indication: PAIN
     Dosage: 1 GRAM
     Route: 048
     Dates: start: 20160908
  11. BUSCOPAN [Concomitant]
     Active Substance: BUTYLSCOPOLAMINE BROMIDE
     Dosage: UNK
  12. FRUSEMIDE                          /00032601/ [Concomitant]
     Active Substance: FUROSEMIDE
     Indication: ACUTE KIDNEY INJURY
     Dosage: UNK
  13. OXYNORM [Concomitant]
     Active Substance: OXYCODONE HYDROCHLORIDE
     Indication: PAIN
     Dosage: UNK
  14. DALTEPARIN [Concomitant]
     Active Substance: DALTEPARIN
     Dosage: UNK
  15. ALFENTANIL. [Concomitant]
     Active Substance: ALFENTANIL
     Dosage: UNK
  16. GENTAMICIN. [Concomitant]
     Active Substance: GENTAMICIN
     Dosage: UNK
  17. DIAZEPAM. [Concomitant]
     Active Substance: DIAZEPAM
     Dosage: UNK
     Route: 048
  18. PERTUZUMAB. [Suspect]
     Active Substance: PERTUZUMAB
     Indication: HER2 POSITIVE BREAST CANCER
     Dosage: 840 MILLIGRAM, LOADING DOSE
     Route: 042
     Dates: start: 20160718, end: 20160718
  19. MORPHINE SULPHATE [Concomitant]
     Active Substance: MORPHINE SULFATE
     Dosage: UNK
  20. FONDAPARINUX [Concomitant]
     Active Substance: FONDAPARINUX
     Dosage: UNK
  21. NORADRENALINE                      /00127501/ [Concomitant]
     Active Substance: NOREPINEPHRINE
     Dosage: UNK
  22. LEVOMEPROMAZINE [Concomitant]
     Active Substance: LEVOMEPROMAZINE
     Dosage: UNK
  23. TRASTUZUMAB. [Suspect]
     Active Substance: TRASTUZUMAB
     Indication: BREAST CANCER METASTATIC
     Dosage: 798 MILLIGRAM, MONTHLY, 798MG LOADING
     Route: 042
     Dates: start: 20160718, end: 20160718
  24. DOXYCYCLINE. [Suspect]
     Active Substance: DOXYCYCLINE
     Dosage: 160 MILLIGRAM, MONTHLY
     Route: 042
     Dates: start: 20160718
  25. DOCETAXEL. [Suspect]
     Active Substance: DOCETAXEL
     Indication: BREAST CANCER METASTATIC
     Dosage: 160 MILLIGRAM
     Route: 042
     Dates: start: 20160718
  26. MAGNESIUM SULFATE. [Concomitant]
     Active Substance: MAGNESIUM SULFATE
     Dosage: UNK
  27. BISOPROLOL [Concomitant]
     Active Substance: BISOPROLOL
     Dosage: UNK
  28. SANDOCAL 1000 [Concomitant]
     Dosage: UNK
  29. GLUCOGEL [Concomitant]
     Dosage: UNK
  30. DANAPAROID [Concomitant]
     Active Substance: DANAPAROID
     Dosage: UNK
  31. MAGNASPARTATE [Concomitant]
     Indication: BLOOD MAGNESIUM DECREASED
     Dosage: 10 MILLIMOLE
     Route: 065
     Dates: start: 20160908
  32. CLOPIDOGREL [Concomitant]
     Active Substance: CLOPIDOGREL BISULFATE
     Indication: PNEUMONIA
     Dosage: UNK
  33. HYDROCORTISONE. [Concomitant]
     Active Substance: HYDROCORTISONE
     Indication: NEUTROPENIC SEPSIS
     Dosage: UNK
  34. LANSOPRAZOLE. [Concomitant]
     Active Substance: LANSOPRAZOLE
     Dosage: UNK
  35. RAMIPRIL. [Concomitant]
     Active Substance: RAMIPRIL
     Dosage: UNK
  36. HEPARIN [Concomitant]
     Active Substance: HEPARIN SODIUM
     Dosage: UNK
  37. CHLORPHENAMINE [Concomitant]
     Active Substance: CHLORPHENIRAMINE MALEATE
     Dosage: UNK
  38. TRASTUZUMAB. [Suspect]
     Active Substance: TRASTUZUMAB
     Dosage: 588 MILLIGRAM, MONTHLY
     Route: 042
     Dates: start: 20160808, end: 20160808
  39. TRASTUZUMAB. [Suspect]
     Active Substance: TRASTUZUMAB
     Dosage: 420 MILLIGRAM
     Route: 042
     Dates: start: 20160808, end: 20160830
  40. DOXYCYCLINE. [Suspect]
     Active Substance: DOXYCYCLINE
     Dosage: 164 MILLIGRAM, MONTHLY
     Route: 042
     Dates: start: 20160830
  41. DOCETAXEL. [Suspect]
     Active Substance: DOCETAXEL
     Dosage: 164 MILLIGRAM, MONTHLY
     Route: 042
     Dates: start: 20160830
  42. FLUCONAZOLE. [Concomitant]
     Active Substance: FLUCONAZOLE
     Dosage: UNK
  43. MIDAZOLAM. [Concomitant]
     Active Substance: MIDAZOLAM
     Dosage: UNK
  44. POTASSIUM CHLORIDE. [Concomitant]
     Active Substance: POTASSIUM CHLORIDE
     Dosage: UNK
  45. METARAMINOL [Concomitant]
     Active Substance: METARAMINOL
     Dosage: UNK
  46. EPOPROSTENOL. [Concomitant]
     Active Substance: EPOPROSTENOL
     Dosage: UNK
  47. CODEINE [Concomitant]
     Active Substance: CODEINE
     Dosage: UNK
  48. GLUCOSE [Concomitant]
     Active Substance: DEXTROSE
     Dosage: UNK
     Route: 042
  49. HARTMANS [Concomitant]
     Dosage: UNK
  50. BONJELA                            /01627201/ [Concomitant]
     Dosage: UNK
  51. ERYTHROMYCIN. [Concomitant]
     Active Substance: ERYTHROMYCIN
     Dosage: UNK
  52. TRANEXAMIC ACID. [Concomitant]
     Active Substance: TRANEXAMIC ACID
     Dosage: UNK
  53. TAUROLOCK [Concomitant]
     Active Substance: TAUROLIDINE
     Dosage: UNK
  54. ORAMORPH [Concomitant]
     Active Substance: MORPHINE SULFATE
     Dosage: UNK
  55. DIHYDROCODEINE [Concomitant]
     Active Substance: DIHYDROCODEINE
     Indication: PAIN
     Dosage: 30 MILLIGRAM
     Route: 048
     Dates: start: 20160908
  56. PERTUZUMAB. [Suspect]
     Active Substance: PERTUZUMAB
     Dosage: 420 MILLIGRAM, 840MG FIRST DOSE THEN 420MG
     Route: 042
     Dates: start: 20160808, end: 20160830
  57. DOXYCYCLINE. [Suspect]
     Active Substance: DOXYCYCLINE
     Dosage: 160 MILLIGRAM, MONTHLY
     Route: 042
     Dates: start: 20160808
  58. DOXYCYCLINE. [Concomitant]
     Active Substance: DOXYCYCLINE
     Dosage: UNK
  59. ONDANSETRON [Concomitant]
     Active Substance: ONDANSETRON
     Indication: NAUSEA
     Dosage: 4 MILLIGRAM
     Route: 048
     Dates: start: 20160908
  60. DEXTROSE. [Concomitant]
     Active Substance: DEXTROSE
     Dosage: UNK
  61. METRONIDAZOLE. [Concomitant]
     Active Substance: METRONIDAZOLE
     Dosage: UNK
  62. PROPOFOL. [Concomitant]
     Active Substance: PROPOFOL
     Dosage: UNK
  63. TOLTERODINE [Concomitant]
     Active Substance: TOLTERODINE
     Indication: ACUTE KIDNEY INJURY
     Dosage: UNK
  64. VASOPRESSIN. [Concomitant]
     Active Substance: VASOPRESSIN
     Dosage: UNK
  65. NOREPINEPHRINE. [Concomitant]
     Active Substance: NOREPINEPHRINE
     Dosage: UNK
  66. TINZAPARIN [Concomitant]
     Active Substance: TINZAPARIN
     Dosage: UNK
  67. NASEPTIN [Concomitant]
     Active Substance: CHLORHEXIDINE HYDROCHLORIDE\NEOMYCIN SULFATE
     Dosage: UNK
  68. ZOPICLONE [Concomitant]
     Active Substance: ZOPICLONE
     Dosage: UNK
  69. CITALOPRAM [Concomitant]
     Active Substance: CITALOPRAM HYDROBROMIDE
     Indication: DEPRESSION
     Dosage: 20 MILLIGRAM, QD
     Route: 048
     Dates: start: 20160921
  70. TEICOPLANIN [Concomitant]
     Active Substance: TEICOPLANIN
     Dosage: UNK
  71. ASPIRIN                            /00002701/ [Concomitant]
     Active Substance: ASPIRIN
     Dosage: UNK
  72. MEROPENEM. [Concomitant]
     Active Substance: MEROPENEM
     Dosage: UNK
  73. CYCLIZINE [Concomitant]
     Active Substance: CYCLIZINE
     Indication: NAUSEA
     Dosage: 50 MILLIGRAM, AS NEEDED
     Route: 048
     Dates: start: 20160908
  74. ARGATROBAN. [Concomitant]
     Active Substance: ARGATROBAN
     Dosage: UNK
  75. FILGRASTIM [Concomitant]
     Active Substance: FILGRASTIM
     Dosage: UNK
  76. FLUCLOXACILLIN [Concomitant]
     Active Substance: FLUCLOXACILLIN
     Dosage: UNK
  77. GTN [Concomitant]
     Active Substance: NITROGLYCERIN
     Dosage: UNK
  78. TAZOCIN [Concomitant]
     Active Substance: PIPERACILLIN SODIUM\TAZOBACTAM SODIUM
     Dosage: UNK
  79. LOPERAMIDE [Concomitant]
     Active Substance: LOPERAMIDE
     Indication: DIARRHOEA
     Dosage: 2 MILLIGRAM, UP TO 4 TIMES A DAY IF NEEDED FOR LOOSE
     Route: 048
     Dates: start: 20161230
  80. METOCLOPRAMIDE. [Concomitant]
     Active Substance: METOCLOPRAMIDE
     Dosage: UNK
  81. ALTEPLASE. [Concomitant]
     Active Substance: ALTEPLASE
     Dosage: UNK
     Route: 065
  82. SANDO K                            /00209301/ [Concomitant]
     Active Substance: POTASSIUM BICARBONATE\POTASSIUM CHLORIDE
  83. ERDOTIN [Concomitant]
     Active Substance: ERDOSTEINE
     Dosage: UNK
  84. FRAGMIN [Concomitant]
     Active Substance: DALTEPARIN SODIUM
     Dosage: UNK
  85. SALBUTAMOL [Concomitant]
     Active Substance: ALBUTEROL
     Indication: PNEUMONIA
     Dosage: UNK
  86. MORPHINE [Concomitant]
     Active Substance: MORPHINE
     Dosage: UNK
  87. CALCIUM GLUCONATE. [Concomitant]
     Active Substance: CALCIUM GLUCONATE
     Dosage: UNK
  88. ERDOSTEINE [Concomitant]
     Active Substance: ERDOSTEINE
     Dosage: UNK

REACTIONS (10)
  - Peritonitis [Recovering/Resolving]
  - Diarrhoea [Recovering/Resolving]
  - Colitis [Recovering/Resolving]
  - Abdominal pain [Recovered/Resolved with Sequelae]
  - Pneumonia [Recovered/Resolved]
  - Neutropenic sepsis [Recovered/Resolved]
  - Colitis ischaemic [Recovered/Resolved]
  - Vomiting [Recovered/Resolved with Sequelae]
  - Acute kidney injury [Recovered/Resolved]
  - Perforation [Recovering/Resolving]

NARRATIVE: CASE EVENT DATE: 20160907
